FAERS Safety Report 4781327-0 (Version None)
Quarter: 2005Q3

REPORT INFORMATION
  Report Type: 
  Country: None (occurrence: None)
  Receive Date: 20050914
  Receipt Date: 20050715
  Transmission Date: 20060218
  Serious: No
  Sender: FDA-Public Use
  Company Number: IND-AE-05-SAN-041

PATIENT
  Sex: Female
  Weight: 81.6475 kg

DRUGS (1)
  1. SANCTURA [Suspect]

REACTIONS (1)
  - FATIGUE [None]
